FAERS Safety Report 8145648 (Version 4)
Quarter: 2012Q4

REPORT INFORMATION
  Report Type: 
  Country: FR (occurrence: FR)
  Receive Date: 20110921
  Receipt Date: 20121019
  Transmission Date: 20130627
  Serious: Yes (Life-Threatening, Other)
  Sender: FDA-Public Use
  Company Number: PHHY2011FR81994

PATIENT
  Age: 48 Year
  Sex: Female
  Weight: 60.6 kg

DRUGS (8)
  1. EUCREAS [Suspect]
     Dosage: 1 DF, UNK
     Dates: start: 20100911, end: 20101001
  2. LOXEN LP [Suspect]
     Dosage: 50 mg, BID
     Route: 048
     Dates: start: 1996, end: 20101002
  3. RAMIPRIL [Suspect]
     Dosage: 5 mg, QD
     Dates: start: 1996, end: 20101002
  4. INDAPAMIDE [Suspect]
     Dosage: 2.5 mg, QD
     Dates: start: 1996, end: 20101002
  5. ALLOPURINOL [Suspect]
     Dosage: 300 mg, QD
     Dates: start: 20100911, end: 20100925
  6. SPIRONOLACTONE [Suspect]
     Dosage: 75 mg, UNK
  7. COLCHIMAX [Suspect]
     Dosage: UNK UKN, PRN
     Dates: start: 201005
  8. SERESTA [Suspect]
     Dosage: UNK UKN, UNK
     Dates: start: 20100911

REACTIONS (35)
  - Toxic epidermal necrolysis [Recovered/Resolved with Sequelae]
  - Pyrexia [Recovered/Resolved]
  - Paraesthesia [Unknown]
  - Skin exfoliation [Unknown]
  - Plantar erythema [Unknown]
  - Rash erythematous [Unknown]
  - Oral mucosa erosion [Unknown]
  - Mucosal erosion [Unknown]
  - Dysphagia [Unknown]
  - Conjunctivitis [Unknown]
  - Purpura [Unknown]
  - Chills [Unknown]
  - Face oedema [Unknown]
  - Tachycardia [Unknown]
  - Nikolsky^s sign [Unknown]
  - Dysaesthesia [Unknown]
  - Renal failure chronic [Not Recovered/Not Resolved]
  - Type 2 diabetes mellitus [Unknown]
  - Multi-organ failure [Unknown]
  - Mental disorder [Not Recovered/Not Resolved]
  - Hyporeflexia [Unknown]
  - Cerebral haemorrhage [Unknown]
  - VIIth nerve paralysis [Unknown]
  - Hyperglycaemia [Unknown]
  - Condition aggravated [Unknown]
  - Brachial plexus injury [Unknown]
  - Hypertension [Unknown]
  - Cholestasis [Unknown]
  - Hidradenitis [Unknown]
  - Fungal infection [Unknown]
  - Peripheral sensory neuropathy [Unknown]
  - Axonal neuropathy [Unknown]
  - Clonus [Unknown]
  - Hiccups [Unknown]
  - Myoclonus [Unknown]
